FAERS Safety Report 21693283 (Version 1)
Quarter: 2022Q4

REPORT INFORMATION
  Report Type: Report from Study
  Country: CA (occurrence: CA)
  Receive Date: 20221207
  Receipt Date: 20221207
  Transmission Date: 20230113
  Serious: Yes (Other)
  Sender: FDA-Public Use
  Company Number: CA-MYLANLABS-2022M1135039

PATIENT
  Sex: Female

DRUGS (1)
  1. DYMISTA [Suspect]
     Active Substance: AZELASTINE HYDROCHLORIDE\FLUTICASONE PROPIONATE
     Indication: Product used for unknown indication
     Dosage: 1 DOSAGE FORM, HS, ONE SPRAY IN EACH NOSTRIL EVERY NIGHT)
     Route: 065

REACTIONS (3)
  - Drug dependence [Unknown]
  - Dry mouth [Unknown]
  - Oropharyngeal pain [Unknown]
